FAERS Safety Report 15855970 (Version 1)
Quarter: 2019Q1

REPORT INFORMATION
  Report Type: Spontaneous
  Country: US (occurrence: US)
  Receive Date: 20190122
  Receipt Date: 20190122
  Transmission Date: 20190417
  Serious: No
  Sender: FDA-Public Use
  Company Number: US-UNITED THERAPEUTICS-UNT-2019-001144

PATIENT
  Age: 71 Year
  Sex: Male

DRUGS (1)
  1. REMODULIN [Suspect]
     Active Substance: TREPROSTINIL
     Indication: PULMONARY ARTERIAL HYPERTENSION
     Dosage: 0.022 ?G/KG, CONTINUING
     Route: 058
     Dates: start: 20181019

REACTIONS (3)
  - Wrong technique in device usage process [Unknown]
  - Infusion site pain [Not Recovered/Not Resolved]
  - Infusion site haemorrhage [Unknown]

NARRATIVE: CASE EVENT DATE: 20190113
